FAERS Safety Report 11077892 (Version 2)
Quarter: 2015Q2

REPORT INFORMATION
  Report Type: Spontaneous
  Country: US (occurrence: US)
  Receive Date: 20150430
  Receipt Date: 20150617
  Transmission Date: 20150821
  Serious: Yes (Other)
  Sender: FDA-Public Use
  Company Number: US-THROMBOGENICS NV-SPO-2015-1684

PATIENT
  Age: 30 Year
  Sex: Female

DRUGS (1)
  1. JETREA [Suspect]
     Active Substance: OCRIPLASMIN
     Indication: VITREOUS ADHESIONS
     Dosage: 0.125 MG, ONE TIME DOSE
     Route: 031
     Dates: start: 20150123, end: 20150123

REACTIONS (13)
  - Photopsia [Unknown]
  - Night blindness [Unknown]
  - Intraocular pressure increased [Unknown]
  - Miosis [Unknown]
  - Photophobia [Unknown]
  - Visual acuity reduced [Not Recovered/Not Resolved]
  - Chromatopsia [Not Recovered/Not Resolved]
  - Vitreous floaters [Unknown]
  - Metamorphopsia [Unknown]
  - Loss of visual contrast sensitivity [Not Recovered/Not Resolved]
  - Vision blurred [Unknown]
  - Pupillary reflex impaired [Not Recovered/Not Resolved]
  - Ocular hyperaemia [Unknown]

NARRATIVE: CASE EVENT DATE: 20150123
